FAERS Safety Report 4873342-3 (Version None)
Quarter: 2006Q1

REPORT INFORMATION
  Report Type: 
  Country: None (occurrence: None)
  Receive Date: 20060104
  Receipt Date: 20051220
  Transmission Date: 20060701
  Serious: Yes (Hospitalization)
  Sender: FDA-Public Use
  Company Number: 13224944

PATIENT
  Age: 65 Year
  Sex: Male

DRUGS (7)
  1. REVIA [Suspect]
     Indication: ALCOHOLISM
     Dosage: 50 MILLIGRAM 1 DAY ORAL
     Route: 048
     Dates: start: 20051104, end: 20051117
  2. ALDACTONE [Suspect]
     Indication: HYPERTENSION
     Dosage: 25 MILLIGRAM 1 DAY
     Dates: start: 20050827, end: 20051003
  3. OFLOXACIN [Suspect]
     Indication: HYPERKERATOSIS
     Dosage: 400 MILLIGRAM 1 DAY
     Dates: start: 20051104, end: 20051108
  4. LANSOPRAZOLE [Suspect]
     Indication: ULCER
     Dosage: 30 MILLIGRAM 1 DAY
     Dates: start: 20050827
  5. DILTIAZEM HCL [Suspect]
     Indication: HYPERTENSION
     Dosage: 200 MILLIGRAM 1 DAY
  6. VALSARTAN [Suspect]
     Indication: HYPERTENSION
     Dosage: 80 MILLIGRAM 1 DAY
  7. LEVOTHYROXINE SODIUM [Suspect]
     Indication: HYPOTHYROIDISM
     Dosage: 175 MICROGRAM 1 DAY

REACTIONS (7)
  - ALCOHOL DETOXIFICATION [None]
  - CUTANEOUS VASCULITIS [None]
  - HEPATITIS C POSITIVE [None]
  - HYPERKERATOSIS [None]
  - LOCALISED INFECTION [None]
  - RASH ERYTHEMATOUS [None]
  - SUPERINFECTION [None]
